FAERS Safety Report 15377238 (Version 2)
Quarter: 2018Q3

REPORT INFORMATION
  Report Type: Spontaneous
  Country: US (occurrence: US)
  Receive Date: 20180913
  Receipt Date: 20180919
  Transmission Date: 20181010
  Serious: No
  Sender: FDA-Public Use
  Company Number: US-PFIZER INC-2018366485

PATIENT
  Age: 51 Year
  Sex: Female
  Weight: 138.78 kg

DRUGS (14)
  1. PROTONIX [Concomitant]
     Active Substance: PANTOPRAZOLE SODIUM
     Dosage: 40 MG, 1X/DAY
     Route: 048
  2. XELJANZ XR [Suspect]
     Active Substance: TOFACITINIB CITRATE
     Indication: RHEUMATOID ARTHRITIS
     Dosage: 11 MG, 1X/DAY
     Route: 048
  3. PREDNISONE. [Concomitant]
     Active Substance: PREDNISONE
     Dosage: 1?2 TABLETS, 1X/DAY
     Route: 048
  4. LYRICA [Concomitant]
     Active Substance: PREGABALIN
     Dosage: 100 MG, 3X/DAY
     Route: 048
  5. VITAMIN D3 [Concomitant]
     Active Substance: CHOLECALCIFEROL
     Dosage: 50000 IU  (1 CAPSULE), WEEKLY
     Route: 048
  6. NYSTATIN. [Concomitant]
     Active Substance: NYSTATIN
     Dosage: 1 APPLICATION TO AFFECTED AREA EXTERNALLY, 2X/DAY
     Route: 061
  7. COZAAR [Concomitant]
     Active Substance: LOSARTAN POTASSIUM
     Dosage: 50 MG, 1X/DAY
     Route: 048
  8. PRAZOSIN HCL [Concomitant]
     Active Substance: PRAZOSIN HYDROCHLORIDE
     Dosage: 2 MG, 3X/DAY
     Route: 048
  9. TROKENDI XR [Concomitant]
     Active Substance: TOPIRAMATE
     Dosage: 25 MG (2 CAPSULES), 1X/DAY
     Route: 048
  10. CHLORTHALIDONE. [Concomitant]
     Active Substance: CHLORTHALIDONE
     Dosage: 25 MG, 1X/DAY (1 TABLET IN THE MORNING)
     Route: 048
  11. ALBUTEROL SULFATE. [Concomitant]
     Active Substance: ALBUTEROL SULFATE
     Dosage: 216 UG (2 PUFFS) 108MCG/ACT, AS NEEDED EVERY 4 HRS
     Route: 055
  12. BENTYL [Concomitant]
     Active Substance: DICYCLOMINE HYDROCHLORIDE
     Dosage: 120 MG, 4X/DAY
     Route: 048
  13. DULERA [Concomitant]
     Active Substance: FORMOTEROL FUMARATE DIHYDRATE\MOMETASONE FUROATE
     Dosage: UNK, AS DIRECTED
  14. TOPAMAX [Concomitant]
     Active Substance: TOPIRAMATE
     Dosage: 50 MG, 2X/DAY (1 TABLET AT BEDTIME, TWICE/DAY)
     Route: 048

REACTIONS (4)
  - Carpal tunnel syndrome [Unknown]
  - Disease recurrence [Unknown]
  - Tendonitis [Unknown]
  - Hypotension [Unknown]
